FAERS Safety Report 17298545 (Version 1)
Quarter: 2020Q1

REPORT INFORMATION
  Report Type: Report from Study
  Country: ES (occurrence: ES)
  Receive Date: 20200122
  Receipt Date: 20200122
  Transmission Date: 20200409
  Serious: Yes (Hospitalization)
  Sender: FDA-Public Use
  Company Number: ES-TEVA-2020-ES-1171312

PATIENT
  Age: 75 Year
  Sex: Female

DRUGS (1)
  1. MOXIFLOXACINO (1119A) [Suspect]
     Active Substance: MOXIFLOXACIN HYDROCHLORIDE
     Indication: CATARRH
     Dates: start: 20180706, end: 20180706

REACTIONS (2)
  - Abdominal pain upper [Recovered/Resolved]
  - Anaphylactic reaction [Recovered/Resolved]

NARRATIVE: CASE EVENT DATE: 20180706
